FAERS Safety Report 7409924-4 (Version None)
Quarter: 2011Q2

REPORT INFORMATION
  Report Type: 
  Country: None (occurrence: None)
  Receive Date: 20110412
  Receipt Date: 20110330
  Transmission Date: 20111010
  Serious: Yes (Other)
  Sender: FDA-Public Use
  Company Number: PHHY2011US26484

PATIENT
  Sex: Female

DRUGS (8)
  1. FAMPRIDINE [Concomitant]
     Dosage: UNK
  2. GILENYA [Suspect]
     Indication: MULTIPLE SCLEROSIS
     Dosage: 0.5 MG, DAILY
     Route: 048
     Dates: start: 20110103
  3. OXYBUTYNIN [Concomitant]
     Dosage: UNK
  4. MAXZIDE [Concomitant]
     Dosage: UNK
  5. NAPROXEN [Concomitant]
     Dosage: UNK, PRN
  6. PREMARIN [Concomitant]
     Dosage: UNK
  7. BACLOFEN [Concomitant]
     Dosage: UNK
  8. VICODIN [Concomitant]
     Dosage: UNK

REACTIONS (1)
  - VULVOVAGINAL MYCOTIC INFECTION [None]
